FAERS Safety Report 9262609 (Version 1)
Quarter: 2013Q2

REPORT INFORMATION
  Report Type: Spontaneous
  Country: AU (occurrence: AU)
  Receive Date: 20130430
  Receipt Date: 20130430
  Transmission Date: 20140414
  Serious: Yes (Life-Threatening, Other)
  Sender: FDA-Public Use
  Company Number: AU-ELI_LILLY_AND_COMPANY-AU201304006493

PATIENT
  Age: 29 Year
  Sex: Female

DRUGS (4)
  1. FLUOXETINE [Suspect]
     Dosage: 1 DF, UNKNOWN
     Route: 048
  2. QUETIAPINE [Concomitant]
     Dosage: 200 MG, QD
  3. CELESTONE [Concomitant]
     Dosage: 1 DF, UNKNOWN
  4. NIFEDIPINE [Concomitant]
     Dosage: 1 DF, UNKNOWN

REACTIONS (4)
  - Postpartum haemorrhage [Recovered/Resolved]
  - Premature labour [Recovered/Resolved]
  - Maternal exposure timing unspecified [Unknown]
  - Caesarean section [None]
